FAERS Safety Report 16800141 (Version 1)
Quarter: 2019Q3

REPORT INFORMATION
  Report Type: Spontaneous
  Country: US (occurrence: US)
  Receive Date: 20190723
  Receipt Date: 20190723
  Transmission Date: 20191005
  Serious: No
  Sender: FDA-Public Use
  Company Number: None

PATIENT
  Age: 43 Year
  Sex: Female

DRUGS (1)
  1. TALTZ [Suspect]
     Active Substance: IXEKIZUMAB
     Dates: start: 201904

REACTIONS (3)
  - Injection site pain [None]
  - Injection site swelling [None]
  - Rhinorrhoea [None]

NARRATIVE: CASE EVENT DATE: 20190602
